FAERS Safety Report 15241224 (Version 1)
Quarter: 2018Q3

REPORT INFORMATION
  Report Type: Spontaneous
  Country: US (occurrence: US)
  Receive Date: 20180711
  Receipt Date: 20180711
  Transmission Date: 20181010
  Serious: No
  Sender: FDA-Public Use
  Company Number: None

PATIENT
  Age: 69 Year
  Sex: Female
  Weight: 98.55 kg

DRUGS (12)
  1. AVAPRO [Concomitant]
     Active Substance: IRBESARTAN
  2. LASIX [Concomitant]
     Active Substance: FUROSEMIDE
  3. VITAMIN D [Concomitant]
     Active Substance: CHOLECALCIFEROL
  4. POTASSIUM [Concomitant]
     Active Substance: POTASSIUM
  5. VITAMIN B12 [Concomitant]
     Active Substance: CYANOCOBALAMIN
  6. SOOLANTRA [Concomitant]
     Active Substance: IVERMECTIN
  7. CULTURELLE PRO BIOTIC [Concomitant]
  8. FLAGYL [Concomitant]
     Active Substance: METRONIDAZOLE\METRONIDAZOLE HYDROCHLORIDE
  9. PANTOPRAZOL [Concomitant]
     Active Substance: PANTOPRAZOLE SODIUM
  10. HCTZ [Concomitant]
     Active Substance: HYDROCHLOROTHIAZIDE
  11. CLINDAMYCIN. [Suspect]
     Active Substance: CLINDAMYCIN
     Indication: INFECTION
  12. JUICE PLUS CAPSULES [Concomitant]

REACTIONS (5)
  - Pyrexia [None]
  - Diarrhoea [None]
  - Flatulence [None]
  - Mucous stools [None]
  - Chills [None]

NARRATIVE: CASE EVENT DATE: 20180624
